FAERS Safety Report 22344247 (Version 1)
Quarter: 2023Q2

REPORT INFORMATION
  Report Type: Spontaneous
  Country: FR (occurrence: FR)
  Receive Date: 20230519
  Receipt Date: 20230519
  Transmission Date: 20230721
  Serious: Yes (Other)
  Sender: FDA-Public Use
  Company Number: FR-MYLANLABS-2023M1042155

PATIENT
  Age: 60 Year
  Sex: Female
  Weight: 55 kg

DRUGS (1)
  1. LYRICA [Suspect]
     Active Substance: PREGABALIN
     Indication: Pain
     Dosage: 60 MILLIGRAM PER MILLILITRE, QD (40 MG IN THE EVENING THEN 20 MG IN THE MORNING FOR 14 DAYS)
     Route: 065

REACTIONS (1)
  - Product dose omission issue [Unknown]
